FAERS Safety Report 20680596 (Version 1)
Quarter: 2022Q2

REPORT INFORMATION
  Report Type: Spontaneous
  Country: CN (occurrence: CN)
  Receive Date: 20220406
  Receipt Date: 20220406
  Transmission Date: 20220720
  Serious: Yes (Other)
  Sender: FDA-Public Use
  Company Number: CN-PFIZER INC-202200498352

PATIENT
  Age: 78 Year
  Sex: Male

DRUGS (3)
  1. IDARUBICIN HYDROCHLORIDE [Suspect]
     Active Substance: IDARUBICIN HYDROCHLORIDE
     Indication: Chemotherapy
     Dosage: 10 MG(D8-D9)
     Dates: start: 20220215
  2. CYTARABINE [Suspect]
     Active Substance: CYTARABINE
     Indication: Chemotherapy
     Dosage: 50 MG(D1-D7)
     Dates: start: 20220215
  3. CYTARABINE [Suspect]
     Active Substance: CYTARABINE
     Dosage: 100 MG(D8-D9)

REACTIONS (4)
  - Myelosuppression [Unknown]
  - Pneumonitis [Unknown]
  - Lung consolidation [Unknown]
  - Atelectasis [Unknown]
